FAERS Safety Report 8513624-7 (Version None)
Quarter: 2012Q3

REPORT INFORMATION
  Report Type: 
  Country: None (occurrence: None)
  Receive Date: 20120717
  Receipt Date: 20120710
  Transmission Date: 20120928
  Serious: Yes (Other)
  Sender: FDA-Public Use
  Company Number: US-PFIZER INC-2012167017

PATIENT
  Sex: Female
  Weight: 74.83 kg

DRUGS (2)
  1. VESICARE [Suspect]
     Indication: BLADDER DISORDER
     Dosage: UNK
     Dates: start: 20120101, end: 20120101
  2. LYRICA [Suspect]
     Indication: FIBROMYALGIA
     Dosage: 25 MG, 2X/DAY
     Route: 048
     Dates: start: 20120601

REACTIONS (9)
  - FATIGUE [None]
  - WEIGHT INCREASED [None]
  - THERAPEUTIC RESPONSE UNEXPECTED [None]
  - SUICIDAL IDEATION [None]
  - VISION BLURRED [None]
  - ANXIETY [None]
  - DISTURBANCE IN ATTENTION [None]
  - PAIN [None]
  - OEDEMA PERIPHERAL [None]
